FAERS Safety Report 14539166 (Version 1)
Quarter: 2018Q1

REPORT INFORMATION
  Report Type: Spontaneous
  Country: US (occurrence: US)
  Receive Date: 20180214
  Receipt Date: 20180214
  Transmission Date: 20180509
  Serious: Yes (Hospitalization)
  Sender: FDA-Public Use
  Company Number: None

PATIENT
  Age: 61 Year
  Sex: Female

DRUGS (1)
  1. REBIF [Suspect]
     Active Substance: INTERFERON BETA-1A
     Indication: MULTIPLE SCLEROSIS
     Dosage: 4.4MCG TIW (WEEKS-1.2) SUBCUTANEOUSLY
     Route: 058
     Dates: start: 201802

REACTIONS (2)
  - Fall [None]
  - Clavicle fracture [None]

NARRATIVE: CASE EVENT DATE: 20180204
